FAERS Safety Report 21208684 (Version 1)
Quarter: 2022Q3

REPORT INFORMATION
  Report Type: Report from Study
  Country: US (occurrence: US)
  Receive Date: 20220812
  Receipt Date: 20220812
  Transmission Date: 20221027
  Serious: Yes (Other)
  Sender: FDA-Public Use
  Company Number: US-TAKEDA-2022TUS055556

PATIENT
  Sex: Female
  Weight: 35 kg

DRUGS (18)
  1. HUMAN IMMUNOGLOBULIN G [Suspect]
     Active Substance: HUMAN IMMUNOGLOBULIN G
     Indication: Illness
     Dosage: 4 GRAM, 1/WEEK
     Route: 058
     Dates: start: 20181024
  2. DIPHENHYDRAMINE [Concomitant]
     Active Substance: DIPHENHYDRAMINE
  3. FAMOTIDINE [Concomitant]
     Active Substance: FAMOTIDINE
  4. IBUPROFEN [Concomitant]
     Active Substance: IBUPROFEN
  5. LIDOCAINE [Concomitant]
     Active Substance: LIDOCAINE
  6. EPINEPHRINE [Concomitant]
     Active Substance: EPINEPHRINE
  7. TOBRAMYCIN [Concomitant]
     Active Substance: TOBRAMYCIN
  8. CAYSTON [Concomitant]
     Active Substance: AZTREONAM
  9. ACETYLCYSTEINE [Concomitant]
     Active Substance: ACETYLCYSTEINE
  10. PULMOZYME [Concomitant]
     Active Substance: DORNASE ALFA
  11. NITROGLYCERIN [Concomitant]
     Active Substance: NITROGLYCERIN
  12. LAMICTAL [Concomitant]
     Active Substance: LAMOTRIGINE
  13. PEPCID [Concomitant]
     Active Substance: FAMOTIDINE
  14. Polyvisol [Concomitant]
  15. DIAZEPAM [Concomitant]
     Active Substance: DIAZEPAM
  16. FLUTICASONE [Concomitant]
     Active Substance: FLUTICASONE
  17. SIMETHICONE (DIMETHICONE) [Concomitant]
     Active Substance: DIMETHICONE
  18. VITAMIN C [Concomitant]
     Active Substance: ASCORBIC ACID

REACTIONS (3)
  - Pseudomonas infection [Unknown]
  - COVID-19 [Recovered/Resolved]
  - Hypersomnia [Unknown]
